FAERS Safety Report 20771931 (Version 2)
Quarter: 2022Q3

REPORT INFORMATION
  Report Type: Spontaneous
  Country: DE (occurrence: DE)
  Receive Date: 20220501
  Receipt Date: 20220705
  Transmission Date: 20221026
  Serious: Yes (Hospitalization, Other)
  Sender: FDA-Public Use
  Company Number: DE-BoehringerIngelheim-2022-BI-167608

PATIENT
  Sex: Female
  Weight: 52 kg

DRUGS (1)
  1. OFEV [Suspect]
     Active Substance: NINTEDANIB
     Indication: Idiopathic pulmonary fibrosis
     Route: 048
     Dates: start: 201601

REACTIONS (9)
  - Idiopathic pulmonary fibrosis [Unknown]
  - Pulmonary fibrosis [Unknown]
  - Pulmonary arterial hypertension [Unknown]
  - Cor pulmonale [Unknown]
  - Diarrhoea [Unknown]
  - Hypoventilation [Unknown]
  - Dyspnoea [Unknown]
  - Productive cough [Unknown]
  - Tachycardia [Unknown]
